FAERS Safety Report 18262332 (Version 2)
Quarter: 2020Q3

REPORT INFORMATION
  Report Type: Report from Study
  Country: ES (occurrence: ES)
  Receive Date: 20200914
  Receipt Date: 20200916
  Transmission Date: 20201103
  Serious: Yes (Death, Other)
  Sender: FDA-Public Use
  Company Number: ES-GLAXOSMITHKLINE-ES2020GSK183110

PATIENT
  Age: 80 Year
  Sex: Male

DRUGS (10)
  1. MEGEFREN [Concomitant]
     Indication: DECREASED APPETITE
     Dosage: 160 MG, QD (1 IN 1 D)
     Route: 048
     Dates: start: 20191226
  2. ASPIRIN. [Concomitant]
     Active Substance: ASPIRIN
     Indication: PROCTALGIA
     Dosage: 1 DF, QD
     Route: 048
     Dates: start: 201805
  3. NIRAPARIB [Suspect]
     Active Substance: NIRAPARIB
     Indication: TRANSITIONAL CELL CARCINOMA
     Dosage: 200 MG, QD (1 IN 1 D)
     Route: 048
     Dates: start: 20191106
  4. METAMIZOL [Concomitant]
     Active Substance: METAMIZOLE SODIUM
     Indication: PROCTALGIA
     Dosage: 575 MG
     Route: 048
     Dates: start: 201910
  5. OMEPRAZOLE. [Concomitant]
     Active Substance: OMEPRAZOLE
     Indication: GASTROINTESTINAL DISORDER PROPHYLAXIS
     Dosage: 1 DF (1 IN 1 D)
     Route: 048
     Dates: start: 201805
  6. ACLIDINIUM BROMIDE. [Concomitant]
     Active Substance: ACLIDINIUM BROMIDE
     Indication: ASTHMA
     Dosage: 322 OTHER
     Route: 048
     Dates: start: 2009
  7. ATEZOLIZUMAB. [Suspect]
     Active Substance: ATEZOLIZUMAB
     Indication: TRANSITIONAL CELL CARCINOMA
     Dosage: FIXED DOSE OF 1200 MG EVERY 3 WEEKS (Q3W) ON DAY 1 OF EACH 21?DAY CYCLE
     Route: 042
     Dates: start: 20191106
  8. MONTELUKAST [Concomitant]
     Active Substance: MONTELUKAST SODIUM
     Indication: ASTHMA
     Dosage: 10 MG (1 IN 1 D)
     Route: 048
     Dates: start: 2009
  9. SYMBICORT [Concomitant]
     Active Substance: BUDESONIDE\FORMOTEROL FUMARATE DIHYDRATE
     Indication: ASTHMA
     Dosage: UNK, BID (2 IN 1 D)
     Route: 055
     Dates: start: 2009
  10. ESCITALOPRAM [Concomitant]
     Active Substance: ESCITALOPRAM OXALATE
     Indication: DEPRESSION
     Dosage: UNK, QD (1 IN 1 D)
     Route: 048
     Dates: start: 20191217

REACTIONS (1)
  - Malignant neoplasm progression [Fatal]

NARRATIVE: CASE EVENT DATE: 20200604
